FAERS Safety Report 22306742 (Version 1)
Quarter: 2023Q2

REPORT INFORMATION
  Report Type: Spontaneous
  Country: RU (occurrence: RU)
  Receive Date: 20230511
  Receipt Date: 20230511
  Transmission Date: 20230722
  Serious: Yes (Life-Threatening, Other)
  Sender: FDA-Public Use
  Company Number: RU-002147023-NVSC2023RU107368

PATIENT
  Age: 26 Year
  Sex: Female
  Weight: 72 kg

DRUGS (1)
  1. AMOXICILLIN\CLAVULANIC ACID [Suspect]
     Active Substance: AMOXICILLIN\CLAVULANIC ACID
     Indication: Antibiotic prophylaxis
     Dosage: 1200 MG, ONCE/SINGLE (1200 MG PER 400 OF SALINE SOLUTION)
     Route: 041
     Dates: start: 20230503, end: 20230503

REACTIONS (5)
  - Blood pressure decreased [Recovering/Resolving]
  - Angioedema [Recovering/Resolving]
  - Muscular weakness [Recovering/Resolving]
  - Hyperaemia [Recovering/Resolving]
  - Nausea [Recovering/Resolving]

NARRATIVE: CASE EVENT DATE: 20230503
